FAERS Safety Report 12506095 (Version 1)
Quarter: 2016Q2

REPORT INFORMATION
  Report Type: Spontaneous
  Country: US (occurrence: US)
  Receive Date: 20160628
  Receipt Date: 20160628
  Transmission Date: 20160815
  Serious: No
  Sender: FDA-Public Use
  Company Number: US-PURDUE-USA-2015-0127508

PATIENT
  Sex: Male

DRUGS (2)
  1. DRONABINOL CAPSULES [Suspect]
     Active Substance: DRONABINOL
     Indication: BREAKTHROUGH PAIN
     Dosage: 20 MG, QID VIA J-TUBE
     Route: 050
     Dates: start: 20151028
  2. DRONABINOL CAPSULES [Suspect]
     Active Substance: DRONABINOL
     Dosage: 20 MG PRN VIA J-TUBE
     Route: 050

REACTIONS (1)
  - Wrong technique in product usage process [Unknown]
